FAERS Safety Report 22361773 (Version 1)
Quarter: 2023Q2

REPORT INFORMATION
  Report Type: Spontaneous
  Country: US (occurrence: US)
  Receive Date: 20230524
  Receipt Date: 20230524
  Transmission Date: 20230722
  Serious: No
  Sender: FDA-Public Use
  Company Number: US-SUNOVION-2023SUN000663AA

PATIENT
  Sex: Male

DRUGS (1)
  1. LATUDA [Suspect]
     Active Substance: LURASIDONE HYDROCHLORIDE
     Indication: Bipolar disorder
     Dosage: UNKNOWN
     Route: 048

REACTIONS (4)
  - Increased appetite [Unknown]
  - Anxiety [Unknown]
  - Weight increased [Unknown]
  - Product administration error [Unknown]
